FAERS Safety Report 8890860 (Version 1)
Quarter: 2012Q4

REPORT INFORMATION
  Report Type: 
  Country: FR (occurrence: FR)
  Receive Date: 20121107
  Receipt Date: 20121107
  Transmission Date: 20130627
  Serious: Yes (Life-Threatening, Hospitalization)
  Sender: FDA-Public Use
  Company Number: FR-ROCHE-1152975

PATIENT
  Age: 57 Year
  Sex: Male

DRUGS (10)
  1. ROVALCYTE [Suspect]
     Indication: PRODUCT USED FOR UNKNOWN INDICATION
     Route: 065
     Dates: start: 20120630, end: 20120914
  2. INEXIUM [Suspect]
     Indication: PRODUCT USED FOR UNKNOWN INDICATION
     Route: 048
     Dates: end: 20120914
  3. CELLCEPT [Suspect]
     Indication: PRODUCT USED FOR UNKNOWN INDICATION
     Route: 065
  4. EUPRESSYL [Concomitant]
     Route: 065
  5. LOXEN [Concomitant]
     Route: 065
  6. URSOLVAN [Concomitant]
     Route: 065
  7. AVLOCARDYL [Concomitant]
     Route: 065
  8. SOLUPRED (FRANCE) [Concomitant]
     Route: 065
  9. NEORAL [Concomitant]
     Route: 065
  10. BACTRIM FORTE [Suspect]
     Indication: PRODUCT USED FOR UNKNOWN INDICATION
     Route: 048
     Dates: start: 20120630, end: 20120914

REACTIONS (2)
  - Agranulocytosis [Recovered/Resolved]
  - Leukopenia [Recovered/Resolved]
